FAERS Safety Report 8574953-4 (Version None)
Quarter: 2012Q3

REPORT INFORMATION
  Report Type: 
  Country: None (occurrence: None)
  Receive Date: 20120807
  Receipt Date: 20120801
  Transmission Date: 20120928
  Serious: Yes (Other)
  Sender: FDA-Public Use
  Company Number: US-SANOFI-AVENTIS-2012SA055704

PATIENT
  Sex: Male

DRUGS (4)
  1. LANTUS [Suspect]
     Dosage: DOSE:30 UNIT(S)
     Route: 058
     Dates: start: 20120731, end: 20120731
  2. SOLOSTAR [Suspect]
  3. LANTUS [Suspect]
     Route: 058
  4. NOVOLOG [Suspect]
     Route: 058

REACTIONS (3)
  - BLOOD GLUCOSE INCREASED [None]
  - TRIGGER FINGER [None]
  - DYSPNOEA [None]
